FAERS Safety Report 7316341-4 (Version None)
Quarter: 2011Q1

REPORT INFORMATION
  Report Type: 
  Country: None (occurrence: None)
  Receive Date: 20110225
  Receipt Date: 20110218
  Transmission Date: 20110831
  Serious: Yes (Other)
  Sender: FDA-Public Use
  Company Number: US-US-EMD SERONO, INC.-7040343

PATIENT
  Sex: Female
  Weight: 77 kg

DRUGS (5)
  1. REBIF [Suspect]
     Indication: MULTIPLE SCLEROSIS
     Route: 058
     Dates: start: 20091112
  2. REBIF [Suspect]
     Dates: start: 20110101
  3. DEXILANT [Concomitant]
     Indication: GASTROOESOPHAGEAL REFLUX DISEASE
  4. HYDROCHLOROTHIAZIDE [Concomitant]
     Indication: HYPERTENSION
     Route: 048
  5. ANTI-DEPRESSANT [Concomitant]

REACTIONS (4)
  - SENSATION OF HEAVINESS [None]
  - COLITIS MICROSCOPIC [None]
  - GAIT DISTURBANCE [None]
  - FATIGUE [None]
